FAERS Safety Report 10577903 (Version 1)
Quarter: 2014Q4

REPORT INFORMATION
  Report Type: Spontaneous
  Country: GB (occurrence: GB)
  Receive Date: 20141112
  Receipt Date: 20141112
  Transmission Date: 20150529
  Serious: Yes (Other)
  Sender: FDA-Public Use
  Company Number: GB-ROCHE-1489120

PATIENT
  Age: 66 Year
  Sex: Female
  Weight: 77.56 kg

DRUGS (1)
  1. NAPROXEN. [Suspect]
     Active Substance: NAPROXEN
     Indication: PRODUCT USED FOR UNKNOWN INDICATION
     Dosage: MOST RECENT DOSE RECEIVED ON 09/SEP/2014?1 TABLET WHEN REQUIRED.
     Route: 048
     Dates: start: 20140303

REACTIONS (1)
  - Vertigo [Recovered/Resolved]

NARRATIVE: CASE EVENT DATE: 20140904
